FAERS Safety Report 7553862-3 (Version None)
Quarter: 2011Q2

REPORT INFORMATION
  Report Type: 
  Country: None (occurrence: None)
  Receive Date: 20110617
  Receipt Date: 20110613
  Transmission Date: 20111010
  Serious: Yes (Death, Life-Threatening, Hospitalization)
  Sender: FDA-Public Use
  Company Number: ES-BRISTOL-MYERS SQUIBB COMPANY-14477400

PATIENT
  Age: 79 Year
  Sex: Male

DRUGS (9)
  1. WARFARIN SODIUM [Suspect]
     Indication: THROMBOSIS PROPHYLAXIS
     Dosage: INTERRUPTED 19JAN09
     Route: 048
     Dates: start: 20081107, end: 20090120
  2. TAMSULOSIN HCL [Concomitant]
     Dates: start: 20040101
  3. MORPHINE [Concomitant]
     Dates: start: 20090221, end: 20090301
  4. DILTIAZEM RETARD [Concomitant]
     Dates: start: 20081023
  5. ATORVASTATIN [Concomitant]
     Dates: start: 20081023
  6. CHLORPROMAZINE [Concomitant]
     Dates: start: 20090226, end: 20090301
  7. PLACEBO [Suspect]
     Indication: THROMBOSIS PROPHYLAXIS
     Dosage: INTERRUPTED ON 19JAN09
     Route: 048
     Dates: start: 20081107, end: 20090120
  8. PANTOPRAZOLE [Concomitant]
     Dates: start: 20090207, end: 20090301
  9. ACETAMINOPHEN [Concomitant]
     Dates: start: 20090209, end: 20090301

REACTIONS (3)
  - CEREBROVASCULAR ACCIDENT [None]
  - SUBARACHNOID HAEMORRHAGE [None]
  - CARDIO-RESPIRATORY ARREST [None]
